FAERS Safety Report 9303573 (Version 1)
Quarter: 2013Q2

REPORT INFORMATION
  Report Type: Spontaneous
  Country: BR (occurrence: BR)
  Receive Date: 20130522
  Receipt Date: 20130522
  Transmission Date: 20140414
  Serious: Yes (Other)
  Sender: FDA-Public Use
  Company Number: PHHY2013BR050683

PATIENT
  Sex: Female
  Weight: 41 kg

DRUGS (4)
  1. HYDERGINE [Suspect]
     Indication: CARDIOVASCULAR DISORDER
     Dosage: 1 DF (4.5MG), DAILY
     Route: 048
  2. HYDERGINE [Suspect]
     Dosage: 3 DF(1MG), DAILY
     Route: 048
  3. MANIVASC [Concomitant]
     Indication: HYPERTENSION
     Dosage: 1 DF (10MG), AT NIGHT
     Route: 048
  4. OMEGA 3 [Concomitant]
     Indication: BLOOD CHOLESTEROL ABNORMAL
     Dosage: 1 DF, DAILY
     Route: 048

REACTIONS (5)
  - Gastritis [Not Recovered/Not Resolved]
  - Abdominal pain upper [Not Recovered/Not Resolved]
  - Nausea [Not Recovered/Not Resolved]
  - Amnesia [Not Recovered/Not Resolved]
  - Dizziness [Not Recovered/Not Resolved]
